FAERS Safety Report 14239494 (Version 1)
Quarter: 2017Q4

REPORT INFORMATION
  Report Type: Spontaneous
  Country: US (occurrence: None)
  Receive Date: 20171129
  Receipt Date: 20171129
  Transmission Date: 20180321
  Serious: Yes (Hospitalization)
  Sender: FDA-Public Use
  Company Number: None

PATIENT
  Age: 36 Year
  Sex: Male

DRUGS (1)
  1. DAPTOMYCIN. [Suspect]
     Active Substance: DAPTOMYCIN
     Indication: STAPHYLOCOCCAL BACTERAEMIA
     Dosage: FREQUENCY - OTHER
     Route: 042
     Dates: start: 20170404, end: 20170419

REACTIONS (3)
  - Myalgia [None]
  - Blood glucose increased [None]
  - Nephropathy toxic [None]

NARRATIVE: CASE EVENT DATE: 20170419
